FAERS Safety Report 10697186 (Version 3)
Quarter: 2015Q1

REPORT INFORMATION
  Report Type: Report from Study
  Country: CA (occurrence: CA)
  Receive Date: 20150108
  Receipt Date: 20150212
  Transmission Date: 20150721
  Serious: Yes (Other)
  Sender: FDA-Public Use
  Company Number: PHHY2014CA161189

PATIENT
  Age: 64 Year
  Sex: Female

DRUGS (1)
  1. SANDOSTATIN LAR DEPOT [Suspect]
     Active Substance: OCTREOTIDE ACETATE
     Indication: ACROMEGALY
     Dosage: 30 MG, EVERY 4 WEEKS
     Route: 030
     Dates: start: 20141106

REACTIONS (7)
  - Abdominal distension [Unknown]
  - Constipation [Unknown]
  - Nerve compression [Unknown]
  - Heart rate decreased [Unknown]
  - Face oedema [Unknown]
  - Swelling face [Unknown]
  - Neoplasm [Unknown]

NARRATIVE: CASE EVENT DATE: 201411
